FAERS Safety Report 19653573 (Version 1)
Quarter: 2021Q3

REPORT INFORMATION
  Report Type: Spontaneous
  Country: BA (occurrence: BA)
  Receive Date: 20210804
  Receipt Date: 20210804
  Transmission Date: 20211014
  Serious: Yes (Other)
  Sender: FDA-Public Use
  Company Number: BA-SUN PHARMACEUTICAL INDUSTRIES LTD-2021R1-306415

PATIENT
  Age: 60 Year
  Sex: Male

DRUGS (6)
  1. PREDNISONE. [Suspect]
     Active Substance: PREDNISONE
     Dosage: TWO SEPARATE DOSE, BID
     Route: 048
  2. CHLORAMBUCIL [Suspect]
     Active Substance: CHLORAMBUCIL
     Indication: GLOMERULONEPHRITIS MEMBRANOUS
     Dosage: 0.2 MILLIGRAM/KILOGRAM
     Route: 065
  3. METHYLPREDNISOLONE. [Suspect]
     Active Substance: METHYLPREDNISOLONE
     Indication: GLOMERULONEPHRITIS MEMBRANOUS
     Dosage: 1 GRAM EVERY 24 HRS FOR 3 CONSECUTIVE DAYS
     Route: 042
  4. METHYLPREDNISOLONE. [Suspect]
     Active Substance: METHYLPREDNISOLONE
     Dosage: 1 GRAM EVERY 24 HRS FOR 3 CONSECUTIVE DAYS
     Route: 042
  5. PREDNISONE. [Suspect]
     Active Substance: PREDNISONE
     Indication: GLOMERULONEPHRITIS MEMBRANOUS
     Dosage: 0.5 MILLIGRAM/KILOGRAM, DAILY IN SINGLE MORNING
     Route: 048
  6. CHLORAMBUCIL [Suspect]
     Active Substance: CHLORAMBUCIL
     Dosage: 0.15 MILLIGRAM/KILOGRAM
     Route: 065

REACTIONS (2)
  - Diabetes mellitus [Unknown]
  - Pulmonary embolism [Unknown]
